FAERS Safety Report 22293928 (Version 1)
Quarter: 2023Q2

REPORT INFORMATION
  Report Type: Spontaneous
  Country: AU (occurrence: AU)
  Receive Date: 20230508
  Receipt Date: 20230508
  Transmission Date: 20230722
  Serious: Yes (Death, Disabling, Other)
  Sender: FDA-Public Use
  Company Number: AU-GLAXOSMITHKLINE-AU2016GSK062629

PATIENT

DRUGS (1)
  1. TAFENOQUINE [Suspect]
     Active Substance: TAFENOQUINE
     Indication: Prophylaxis
     Dosage: UNK
     Dates: start: 2000

REACTIONS (12)
  - Death [Fatal]
  - Disability [Unknown]
  - Hallucination [Unknown]
  - Bipolar disorder [Unknown]
  - Post-traumatic stress disorder [Unknown]
  - Insomnia [Unknown]
  - Mental disorder [Unknown]
  - Depression [Unknown]
  - Ill-defined disorder [Unknown]
  - Anxiety [Unknown]
  - Toxicity to various agents [Unknown]
  - Adverse drug reaction [Unknown]

NARRATIVE: CASE EVENT DATE: 20230325
